FAERS Safety Report 16570334 (Version 1)
Quarter: 2019Q3

REPORT INFORMATION
  Report Type: Spontaneous
  Country: FR (occurrence: FR)
  Receive Date: 20190715
  Receipt Date: 20190715
  Transmission Date: 20191004
  Serious: Yes (Other)
  Sender: FDA-Public Use
  Company Number: FR-DRREDDYS-GER/FRA/19/0111898

PATIENT
  Age: 72 Year
  Sex: Male
  Weight: 64 kg

DRUGS (13)
  1. GLUCOPHAGE [Concomitant]
     Active Substance: METFORMIN HYDROCHLORIDE
     Indication: STAPHYLOCOCCAL SEPSIS
  2. PIPERACILLINE BASE [Concomitant]
     Active Substance: PIPERACILLIN SODIUM
     Indication: STAPHYLOCOCCAL SEPSIS
  3. PANTOPRAZOLE [Concomitant]
     Active Substance: PANTOPRAZOLE
     Indication: STAPHYLOCOCCAL SEPSIS
  4. TAZOBACTAM [Concomitant]
     Active Substance: TAZOBACTAM
     Indication: STAPHYLOCOCCAL SEPSIS
  5. EZETIMIBE. [Concomitant]
     Active Substance: EZETIMIBE
     Indication: STAPHYLOCOCCAL SEPSIS
  6. BISOCE 2,5 MG, COMPRIME PELLICULE SECABLE [Concomitant]
     Active Substance: BISOPROLOL FUMARATE
     Indication: STAPHYLOCOCCAL SEPSIS
  7. ELIQUIS [Concomitant]
     Active Substance: APIXABAN
     Indication: STAPHYLOCOCCAL SEPSIS
  8. SPIRONOLACTONE. [Concomitant]
     Active Substance: SPIRONOLACTONE
     Indication: STAPHYLOCOCCAL SEPSIS
  9. DAPTOMYCIN. [Suspect]
     Active Substance: DAPTOMYCIN
     Indication: STAPHYLOCOCCAL SEPSIS
     Route: 042
     Dates: start: 20190528, end: 20190605
  10. KARDEGIC [Concomitant]
     Active Substance: ASPIRIN DL-LYSINE
     Indication: STAPHYLOCOCCAL SEPSIS
  11. TAHOR [Concomitant]
     Active Substance: ATORVASTATIN CALCIUM
     Indication: STAPHYLOCOCCAL SEPSIS
  12. RAMIPRIL. [Concomitant]
     Active Substance: RAMIPRIL
     Indication: STAPHYLOCOCCAL SEPSIS
  13. PLAVIX [Concomitant]
     Active Substance: CLOPIDOGREL BISULFATE
     Indication: PRODUCT USED FOR UNKNOWN INDICATION

REACTIONS (1)
  - Interstitial lung disease [Not Recovered/Not Resolved]

NARRATIVE: CASE EVENT DATE: 20190605
